FAERS Safety Report 25558756 (Version 1)
Quarter: 2025Q3

REPORT INFORMATION
  Report Type: Spontaneous
  Country: US (occurrence: US)
  Receive Date: 20250715
  Receipt Date: 20250715
  Transmission Date: 20251020
  Serious: No
  Sender: NOVO NORDISK
  Company Number: US-NOVOPROD-1438076

PATIENT
  Age: 78 Year
  Sex: Female

DRUGS (2)
  1. OZEMPIC [Suspect]
     Active Substance: SEMAGLUTIDE
  2. OZEMPIC [Suspect]
     Active Substance: SEMAGLUTIDE
     Indication: Type 2 diabetes mellitus
     Dosage: 0.5 MG, QW
     Dates: start: 20250214, end: 20250418

REACTIONS (9)
  - Vision blurred [Not Recovered/Not Resolved]
  - Headache [Recovered/Resolved]
  - Rash [Recovered/Resolved]
  - Abdominal pain upper [Recovered/Resolved]
  - Flatulence [Recovered/Resolved]
  - Constipation [Not Recovered/Not Resolved]
  - Gastrooesophageal reflux disease [Not Recovered/Not Resolved]
  - Dysgeusia [Unknown]
  - Blood glucose fluctuation [Not Recovered/Not Resolved]

NARRATIVE: CASE EVENT DATE: 20250201
